FAERS Safety Report 14085725 (Version 1)
Quarter: 2017Q4

REPORT INFORMATION
  Report Type: Report from Study
  Country: None (occurrence: US)
  Receive Date: 20171013
  Receipt Date: 20171013
  Transmission Date: 20180321
  Serious: Yes (Hospitalization)
  Sender: FDA-Public Use
  Company Number: US-ABBVIE-17K-163-1926941-00

PATIENT
  Age: 49 Year
  Sex: Female

DRUGS (3)
  1. HUMIRA [Suspect]
     Active Substance: ADALIMUMAB
     Indication: PSORIASIS
     Dosage: DAY 8
     Route: 058
     Dates: start: 20170331, end: 20170331
  2. HUMIRA [Suspect]
     Active Substance: ADALIMUMAB
     Route: 058
     Dates: start: 20170414
  3. HUMIRA [Suspect]
     Active Substance: ADALIMUMAB
     Indication: PSORIASIS
     Dosage: DAY 1
     Route: 058
     Dates: start: 20170324, end: 20170324

REACTIONS (19)
  - Pain of skin [Not Recovered/Not Resolved]
  - Impaired quality of life [Not Recovered/Not Resolved]
  - Systemic lupus erythematosus [Recovering/Resolving]
  - Frustration tolerance decreased [Not Recovered/Not Resolved]
  - General physical condition abnormal [Not Recovered/Not Resolved]
  - Pruritus [Not Recovered/Not Resolved]
  - Rhinorrhoea [Not Recovered/Not Resolved]
  - Nasopharyngitis [Not Recovered/Not Resolved]
  - Drug effect decreased [Unknown]
  - Scab [Not Recovered/Not Resolved]
  - Helplessness [Not Recovered/Not Resolved]
  - White blood cell count increased [Unknown]
  - Injection site urticaria [Recovered/Resolved]
  - Skin irritation [Not Recovered/Not Resolved]
  - Emotional distress [Not Recovered/Not Resolved]
  - Psoriasis [Not Recovered/Not Resolved]
  - Headache [Recovered/Resolved]
  - Bronchitis [Not Recovered/Not Resolved]
  - Anger [Not Recovered/Not Resolved]

NARRATIVE: CASE EVENT DATE: 2017
